FAERS Safety Report 6723636-1 (Version None)
Quarter: 2010Q2

REPORT INFORMATION
  Report Type: 
  Country: None (occurrence: None)
  Receive Date: 20100513
  Receipt Date: 20100506
  Transmission Date: 20101027
  Serious: Yes (Death, Other)
  Sender: FDA-Public Use
  Company Number: PHHY2010JP29124

PATIENT

DRUGS (9)
  1. CYCLOSPORINE [Suspect]
     Dosage: MATERNAL DOSE: 100 MG/DAY
     Route: 064
  2. APRESOLINE [Suspect]
     Dosage: MATERNAL DOSE: INTRAVENOUS DRIP
     Route: 064
  3. APRESOLINE [Suspect]
     Dosage: MATERNAL DOSE: 40 MG/DAY
     Route: 064
  4. NICARDIPINE HYDROCHLORIDE [Concomitant]
     Route: 064
  5. PREDNISOLONE [Concomitant]
     Dosage: MATERNAL DOSE: 10 MG
     Route: 064
  6. AZATHIOPRINE [Concomitant]
     Dosage: MATERNAL DOSE: 50 MG
     Route: 064
  7. ASPIRIN [Concomitant]
     Dosage: MATERNAL DOSE: 100 MG
     Route: 064
  8. METHYLDOPA [Concomitant]
     Dosage: MATERNAL DOSE: 250 MG
     Route: 064
  9. DARBEPOETIN ALFA [Concomitant]
     Route: 064

REACTIONS (6)
  - ACIDOSIS [None]
  - DRUG EXPOSURE DURING PREGNANCY [None]
  - NEONATAL ASPHYXIA [None]
  - PREMATURE BABY [None]
  - PULMONARY HAEMORRHAGE [None]
  - SMALL FOR DATES BABY [None]
